FAERS Safety Report 20108508 (Version 1)
Quarter: 2021Q4

REPORT INFORMATION
  Report Type: Spontaneous
  Country: US (occurrence: US)
  Receive Date: 20211124
  Receipt Date: 20211124
  Transmission Date: 20220303
  Serious: No
  Sender: FDA-Public Use
  Company Number: US-PERRIGO-21US028950

PATIENT
  Age: 48 Year
  Sex: Female
  Weight: 49.887 kg

DRUGS (15)
  1. POLYETHYLENE GLYCOL 3350 [Suspect]
     Active Substance: POLYETHYLENE GLYCOL 3350
     Indication: Constipation
     Dosage: 17 G, QD
     Route: 048
     Dates: start: 20210928, end: 20210929
  2. LORAZEPAM [Concomitant]
     Active Substance: LORAZEPAM
     Indication: Anxiety
     Dosage: UNK
     Route: 065
  3. LORAZEPAM [Concomitant]
     Active Substance: LORAZEPAM
     Indication: Depression
  4. CLONIDINE [Concomitant]
     Active Substance: CLONIDINE
     Indication: Hypertension
     Dosage: UNK
     Route: 065
  5. MIRTAZAPINE [Concomitant]
     Active Substance: MIRTAZAPINE
     Indication: Product used for unknown indication
     Dosage: UNK
     Route: 065
  6. FERROUS SULFATE [Concomitant]
     Active Substance: FERROUS SULFATE
     Indication: Iron deficiency
     Dosage: UNK
     Route: 065
     Dates: start: 20210916
  7. PANTOPRAZOLE [Concomitant]
     Active Substance: PANTOPRAZOLE
     Indication: Nausea
     Dosage: UNK
     Route: 065
  8. POTASSIUM [Concomitant]
     Active Substance: POTASSIUM
     Indication: Blood potassium decreased
     Dosage: UNK
     Route: 065
  9. HYDROCHLOROTHIAZIDE [Concomitant]
     Active Substance: HYDROCHLOROTHIAZIDE
     Indication: Hypertension
     Dosage: UNK
     Route: 065
  10. ONE A DAY                          /07499601/ [Concomitant]
     Indication: Supplementation therapy
     Dosage: UNK
     Route: 065
  11. ROPINIROLE [Concomitant]
     Active Substance: ROPINIROLE
     Indication: Restless legs syndrome
     Dosage: UNK
     Route: 065
  12. OXYBUTYNIN [Concomitant]
     Active Substance: OXYBUTYNIN
     Indication: Hypertonic bladder
     Dosage: UNK
     Route: 065
  13. UNSPECIFIED INGREDIENT [Concomitant]
     Active Substance: UNSPECIFIED INGREDIENT
     Indication: Hormone replacement therapy
     Dosage: UNK
     Route: 065
  14. TRAZODONE [Concomitant]
     Active Substance: TRAZODONE HYDROCHLORIDE
     Indication: Sleep disorder
     Dosage: UNK
     Route: 065
  15. ATORVASTATIN [Concomitant]
     Active Substance: ATORVASTATIN
     Indication: Blood cholesterol increased
     Dosage: UNK
     Route: 065

REACTIONS (1)
  - Faeces discoloured [Recovered/Resolved]

NARRATIVE: CASE EVENT DATE: 20210929
